FAERS Safety Report 4562143-1 (Version None)
Quarter: 2005Q1

REPORT INFORMATION
  Report Type: 
  Country: None (occurrence: None)
  Receive Date: 20050125
  Receipt Date: 20050113
  Transmission Date: 20050727
  Serious: Yes (Hospitalization)
  Sender: FDA-Public Use
  Company Number: PHBS2005JP00888

PATIENT
  Age: 71 Year
  Sex: Male
  Weight: 52 kg

DRUGS (2)
  1. DIGOXIN [Suspect]
     Indication: ATRIAL FIBRILLATION
     Dosage: 0.13 MG, QW3, ORAL
     Route: 048
  2. RIFAMPICIN [Suspect]
     Dates: start: 19980701, end: 19991001

REACTIONS (3)
  - CARDIOACTIVE DRUG LEVEL DECREASED [None]
  - DRUG INTERACTION [None]
  - PULMONARY TUBERCULOSIS [None]
